FAERS Safety Report 16328331 (Version 4)
Quarter: 2022Q1

REPORT INFORMATION
  Report Type: Spontaneous
  Country: CA (occurrence: CA)
  Receive Date: 20190518
  Receipt Date: 20220308
  Transmission Date: 20220424
  Serious: Yes (Life-Threatening, Hospitalization, Disabling, Congenital Anomaly, Other)
  Sender: FDA-Public Use
  Company Number: CA-AUROBINDO-AUR-APL-2019-027611

PATIENT
  Age: 49 Year
  Sex: Female

DRUGS (28)
  1. AMLODIPINE [Suspect]
     Active Substance: AMLODIPINE BESYLATE
     Indication: Product used for unknown indication
     Dosage: UNK
     Route: 048
  2. AMLODIPINE [Suspect]
     Active Substance: AMLODIPINE BESYLATE
     Dosage: 150 MILLIGRAM, UNK
     Route: 048
  3. ESCITALOPRAM [Suspect]
     Active Substance: ESCITALOPRAM OXALATE
     Indication: Product used for unknown indication
     Dosage: 60 MILLIGRAM, ONCE A DAY
     Route: 065
  4. ESCITALOPRAM [Suspect]
     Active Substance: ESCITALOPRAM OXALATE
     Dosage: UNK
     Route: 048
  5. ESCITALOPRAM [Suspect]
     Active Substance: ESCITALOPRAM OXALATE
     Indication: Product used for unknown indication
     Dosage: UNK
     Route: 048
  6. EPINEPHRINE [Suspect]
     Active Substance: EPINEPHRINE
     Indication: Blood pressure measurement
     Dosage: 30 MICROGRAM, UNK
     Route: 065
  7. POTASSIUM CHLORIDE [Suspect]
     Active Substance: POTASSIUM CHLORIDE
     Indication: Electrolyte substitution therapy
     Dosage: UNK
     Route: 042
  8. POTASSIUM CHLORIDE [Suspect]
     Active Substance: POTASSIUM CHLORIDE
     Indication: Electrolyte substitution therapy
     Dosage: UNK
     Route: 048
  9. RISPERIDONE [Suspect]
     Active Substance: RISPERIDONE
     Indication: Product used for unknown indication
     Dosage: 6 MILLIGRAM, ONCE A DAY
     Route: 065
  10. RISPERIDONE [Suspect]
     Active Substance: RISPERIDONE
     Dosage: 6 MILLIGRAM, ONCE A DAY
     Route: 048
  11. RISPERIDONE [Suspect]
     Active Substance: RISPERIDONE
     Dosage: UNK
     Route: 048
  12. VASOPRESSIN [Suspect]
     Active Substance: VASOPRESSIN
     Indication: Blood pressure measurement
     Dosage: UNK
     Route: 065
  13. NOREPINEPHRINE BITARTRATE [Suspect]
     Active Substance: NOREPINEPHRINE BITARTRATE
     Indication: Blood pressure measurement
     Dosage: 30 MICROGRAM, UNK
     Route: 065
  14. DEXTROSE [Suspect]
     Active Substance: DEXTROSE
     Indication: Resuscitation
     Dosage: UNK
     Route: 065
  15. ESCITALOPRAM OXALATE [Suspect]
     Active Substance: ESCITALOPRAM OXALATE
     Indication: Product used for unknown indication
     Dosage: UNK
     Route: 048
  16. ACTIVATED CHARCOAL [Concomitant]
     Active Substance: ACTIVATED CHARCOAL
     Indication: Product used for unknown indication
     Dosage: UNK
     Route: 065
  17. CALCIUM GLUCONATE [Concomitant]
     Active Substance: CALCIUM GLUCONATE
     Indication: Product used for unknown indication
     Dosage: UNK
     Route: 065
  18. DEXTROSE [Concomitant]
     Active Substance: DEXTROSE
     Indication: Product used for unknown indication
     Dosage: UNK
     Route: 065
  19. EPINEPHRINE [Concomitant]
     Active Substance: EPINEPHRINE
     Indication: Product used for unknown indication
     Dosage: UNK
     Route: 065
  20. ESCITALOPRAM [Concomitant]
     Active Substance: ESCITALOPRAM OXALATE
     Indication: Product used for unknown indication
     Dosage: UNK
     Route: 065
  21. GLUCAGON [Concomitant]
     Active Substance: GLUCAGON
     Indication: Product used for unknown indication
     Dosage: UNK
     Route: 065
  22. INSULIN NOS [Concomitant]
     Active Substance: INSULIN NOS
     Indication: Product used for unknown indication
     Dosage: UNK
     Route: 065
  23. NOREPINEPHRINE [Concomitant]
     Active Substance: NOREPINEPHRINE
     Indication: Product used for unknown indication
     Dosage: UNK
     Route: 065
  24. POTASSIUM CHLORIDE [Concomitant]
     Active Substance: POTASSIUM CHLORIDE
     Indication: Product used for unknown indication
     Dosage: UNK
     Route: 065
  25. RISPERIDONE [Concomitant]
     Active Substance: RISPERIDONE
     Indication: Product used for unknown indication
     Dosage: UNK
     Route: 065
  26. VASOPRESSIN [Concomitant]
     Active Substance: VASOPRESSIN
     Indication: Product used for unknown indication
     Dosage: UNK
     Route: 065
  27. AMLODIPINE [Concomitant]
     Active Substance: AMLODIPINE BESYLATE
     Indication: Product used for unknown indication
     Dosage: UNK
     Route: 065
  28. NOREPINEPHRINE;PROCAINE HYDROCHLORIDE [Concomitant]
     Indication: Product used for unknown indication
     Dosage: UNK
     Route: 065

REACTIONS (37)
  - Altered state of consciousness [Unknown]
  - Anuria [Unknown]
  - Blindness [Unknown]
  - Blindness cortical [Unknown]
  - CSF pressure increased [Unknown]
  - Cardiogenic shock [Unknown]
  - Cerebral infarction [Unknown]
  - Circulatory collapse [Unknown]
  - Colour blindness [Unknown]
  - Cytotoxic oedema [Unknown]
  - Depressed level of consciousness [Unknown]
  - Electrocardiogram P wave abnormal [Unknown]
  - Electrocardiogram ST segment depression [Unknown]
  - Electrocardiogram T wave amplitude decreased [Unknown]
  - Electrocardiogram T wave inversion [Unknown]
  - Electrocardiogram U wave present [Unknown]
  - Embolism [Unknown]
  - Embolism arterial [Unknown]
  - Hyperdynamic left ventricle [Unknown]
  - Hypoglycaemia [Unknown]
  - Hypokalaemia [Unknown]
  - Hypotension [Unknown]
  - Hypothermia [Unknown]
  - Optic atrophy [Unknown]
  - Optic nerve injury [Unknown]
  - Pulmonary oedema [Unknown]
  - Renal tubular necrosis [Unknown]
  - Retinal ischaemia [Unknown]
  - Reversible cerebral vasoconstriction syndrome [Unknown]
  - Shock [Unknown]
  - Tachycardia [Unknown]
  - Ischaemia [Unknown]
  - Visual impairment [Unknown]
  - Condition aggravated [Unknown]
  - Toxicity to various agents [Unknown]
  - Overdose [Unknown]
  - Intentional overdose [Unknown]
